FAERS Safety Report 7006181-8 (Version None)
Quarter: 2010Q3

REPORT INFORMATION
  Report Type: 
  Country: None (occurrence: None)
  Receive Date: 20100921
  Receipt Date: 20100910
  Transmission Date: 20110219
  Serious: Yes (Other)
  Sender: FDA-Public Use
  Company Number: IT-JNJFOC-20100903266

PATIENT
  Age: 65 Year
  Sex: Female

DRUGS (1)
  1. INVEGA [Suspect]
     Indication: PRODUCT USED FOR UNKNOWN INDICATION
     Route: 048

REACTIONS (5)
  - COMA [None]
  - HYPERTENSION [None]
  - HYPOTONIA [None]
  - MIOSIS [None]
  - VENTRICULAR FIBRILLATION [None]
